FAERS Safety Report 20636525 (Version 1)
Quarter: 2022Q1

REPORT INFORMATION
  Report Type: Spontaneous
  Country: US (occurrence: US)
  Receive Date: 20220325
  Receipt Date: 20220325
  Transmission Date: 20220423
  Serious: Yes (Other)
  Sender: FDA-Public Use
  Company Number: US-GLAXOSMITHKLINE-US2022GSK052532

PATIENT
  Sex: Male

DRUGS (15)
  1. ZANTAC [Suspect]
     Active Substance: RANITIDINE HYDROCHLORIDE
     Indication: Dyspepsia
     Dosage: UNKNOWN AT THIS TIME, PERIODS OF NON-USE (AT LEAST 3 MONTHS WITHOUT USE)
     Route: 065
     Dates: start: 200001, end: 201201
  2. ZANTAC [Suspect]
     Active Substance: RANITIDINE HYDROCHLORIDE
     Indication: Gastrooesophageal reflux disease
  3. ZANTAC [Suspect]
     Active Substance: RANITIDINE HYDROCHLORIDE
     Indication: Irritable bowel syndrome
  4. ZANTAC [Suspect]
     Active Substance: RANITIDINE HYDROCHLORIDE
     Indication: Dyspepsia
     Dosage: UNKNOWN AT THIS TIME, PERIODS OF NON-USE (AT LEAST 3 MONTHS WITHOUT USE)
     Route: 065
     Dates: start: 200001, end: 201201
  5. ZANTAC [Suspect]
     Active Substance: RANITIDINE HYDROCHLORIDE
     Indication: Gastrooesophageal reflux disease
  6. ZANTAC [Suspect]
     Active Substance: RANITIDINE HYDROCHLORIDE
     Indication: Irritable bowel syndrome
  7. RANITIDINE [Suspect]
     Active Substance: RANITIDINE
     Indication: Dyspepsia
     Dosage: UNKNOWN AT THIS TIME, PERIODS OF NON-USE (AT LEAST 3 MONTHS WITHOUT USE)
     Route: 065
     Dates: start: 200001, end: 201201
  8. RANITIDINE [Suspect]
     Active Substance: RANITIDINE
     Indication: Gastrooesophageal reflux disease
  9. RANITIDINE [Suspect]
     Active Substance: RANITIDINE
     Indication: Irritable bowel syndrome
  10. RANITIDINE [Suspect]
     Active Substance: RANITIDINE
     Indication: Dyspepsia
     Dosage: UNKNOWN AT THIS TIME, PERIODS OF NON-USE (AT LEAST 3 MONTHS WITHOUT USE)
     Route: 065
     Dates: start: 200001, end: 201201
  11. RANITIDINE [Suspect]
     Active Substance: RANITIDINE
     Indication: Gastrooesophageal reflux disease
  12. RANITIDINE [Suspect]
     Active Substance: RANITIDINE
     Indication: Irritable bowel syndrome
  13. RANITIDINE HYDROCHLORIDE [Suspect]
     Active Substance: RANITIDINE HYDROCHLORIDE
     Indication: Dyspepsia
     Dosage: UNKNOWN AT THIS TIME, PERIODS OF NON-USE (AT LEAST 3 MONTHS WITHOUT USE)
     Route: 065
     Dates: start: 200001, end: 201201
  14. RANITIDINE HYDROCHLORIDE [Suspect]
     Active Substance: RANITIDINE HYDROCHLORIDE
     Indication: Gastrooesophageal reflux disease
  15. RANITIDINE HYDROCHLORIDE [Suspect]
     Active Substance: RANITIDINE HYDROCHLORIDE
     Indication: Irritable bowel syndrome

REACTIONS (2)
  - Colorectal cancer [Unknown]
  - Prostate cancer [Unknown]
